FAERS Safety Report 5416944-8 (Version None)
Quarter: 2007Q3

REPORT INFORMATION
  Report Type: 
  Country: None (occurrence: None)
  Receive Date: 20070816
  Receipt Date: 20070806
  Transmission Date: 20080115
  Serious: Yes (Hospitalization)
  Sender: FDA-Public Use
  Company Number: FR-PFIZER INC-2007065900

PATIENT
  Age: 79 Year
  Sex: Female

DRUGS (4)
  1. AMLODIPINE [Suspect]
     Indication: ESSENTIAL HYPERTENSION
     Route: 048
  2. OROCAL [Suspect]
     Dosage: FREQ:BID
     Route: 048
  3. HYPERIUM [Suspect]
     Indication: ESSENTIAL HYPERTENSION
     Route: 048
  4. HYZAAR [Suspect]
     Indication: ESSENTIAL HYPERTENSION
     Route: 048

REACTIONS (1)
  - CONFUSIONAL STATE [None]
